FAERS Safety Report 13587428 (Version 2)
Quarter: 2018Q3

REPORT INFORMATION
  Report Type: Report from Study
  Country: US (occurrence: US)
  Receive Date: 20170526
  Receipt Date: 20180823
  Transmission Date: 20181010
  Serious: Yes (Hospitalization)
  Sender: FDA-Public Use
  Company Number: US-ACTELION-A-NJ2017-154413

PATIENT
  Age: 64 Year
  Sex: Male

DRUGS (15)
  1. ENALAPRIL [Concomitant]
     Active Substance: ENALAPRIL
  2. TYVASO [Concomitant]
     Active Substance: TREPROSTINIL
  3. NORCO [Concomitant]
     Active Substance: ACETAMINOPHEN\HYDROCODONE BITARTRATE
  4. OSELTAMIVIR [Concomitant]
     Active Substance: OSELTAMIVIR
  5. TORSEMIDE. [Concomitant]
     Active Substance: TORSEMIDE
  6. TRICOR [Concomitant]
     Active Substance: FENOFIBRATE
  7. TRACLEER [Suspect]
     Active Substance: BOSENTAN
     Indication: PULMONARY ARTERIAL HYPERTENSION
     Dosage: 62.5 MG, BID
     Route: 048
     Dates: start: 20130613
  8. SIMVASTATIN. [Concomitant]
     Active Substance: SIMVASTATIN
  9. LEVOFLOXACIN. [Concomitant]
     Active Substance: LEVOFLOXACIN
  10. DOCQLACE [Concomitant]
     Active Substance: DOCUSATE SODIUM
  11. FENTANYL. [Concomitant]
     Active Substance: FENTANYL
  12. ADCIRCA [Concomitant]
     Active Substance: TADALAFIL
  13. PREDNISONE. [Concomitant]
     Active Substance: PREDNISONE
  14. ALBUTEROL. [Concomitant]
     Active Substance: ALBUTEROL
  15. ZOLPIDEM [Concomitant]
     Active Substance: ZOLPIDEM\ZOLPIDEM TARTRATE

REACTIONS (2)
  - Influenza [Recovered/Resolved]
  - Pyrexia [Recovered/Resolved]
